FAERS Safety Report 10578634 (Version 5)
Quarter: 2015Q2

REPORT INFORMATION
  Report Type: Report from Study
  Country: DE (occurrence: DE)
  Receive Date: 20141112
  Receipt Date: 20150610
  Transmission Date: 20150821
  Serious: Yes (Hospitalization)
  Sender: FDA-Public Use
  Company Number: DE-ROCHE-1486745

PATIENT
  Age: 74 Year
  Sex: Female
  Weight: 68 kg

DRUGS (26)
  1. HERCEPTIN [Concomitant]
     Active Substance: TRASTUZUMAB
     Route: 042
     Dates: start: 20140205, end: 20140319
  2. HERCEPTIN [Concomitant]
     Active Substance: TRASTUZUMAB
     Route: 042
     Dates: start: 20140924, end: 20141126
  3. DOCETAXEL. [Concomitant]
     Active Substance: DOCETAXEL
     Route: 042
     Dates: start: 20131023, end: 20131023
  4. PERTUZUMAB [Suspect]
     Active Substance: PERTUZUMAB
     Route: 042
     Dates: start: 20130911, end: 20141126
  5. HERCEPTIN [Concomitant]
     Active Substance: TRASTUZUMAB
     Indication: BREAST CANCER
     Dosage: LOADING DOSE
     Route: 042
     Dates: start: 20130821, end: 20130821
  6. DEXABENE [Concomitant]
     Indication: VOMITING
     Route: 042
     Dates: start: 20130821
  7. HERCEPTIN [Concomitant]
     Active Substance: TRASTUZUMAB
     Route: 042
     Dates: start: 20131223, end: 20140115
  8. DOCETAXEL. [Concomitant]
     Active Substance: DOCETAXEL
     Route: 042
     Dates: start: 20131113, end: 20141126
  9. ONDANSETRON [Concomitant]
     Active Substance: ONDANSETRON
     Indication: VOMITING
     Dosage: ONLY ON DAYS 1 TO 5 OF A CYCLE
     Route: 048
     Dates: start: 20130821
  10. PERTUZUMAB [Suspect]
     Active Substance: PERTUZUMAB
     Indication: HER-2 POSITIVE BREAST CANCER
     Dosage: LOADING DOSE
     Route: 042
     Dates: start: 20130821, end: 20130821
  11. HERCEPTIN [Concomitant]
     Active Substance: TRASTUZUMAB
     Route: 042
     Dates: start: 20130911, end: 20131002
  12. DOCETAXEL. [Concomitant]
     Active Substance: DOCETAXEL
     Route: 042
     Dates: start: 20130911, end: 20131002
  13. HERCEPTIN [Concomitant]
     Active Substance: TRASTUZUMAB
     Route: 042
     Dates: start: 20131023, end: 20131023
  14. HERCEPTIN [Concomitant]
     Active Substance: TRASTUZUMAB
     Route: 042
     Dates: start: 20140409, end: 20140611
  15. FORMOTEROL [Concomitant]
     Active Substance: FORMOTEROL
     Indication: LUNG DISORDER
     Route: 048
  16. DEXAMETHASON [Concomitant]
     Active Substance: DEXAMETHASONE
     Indication: VOMITING
     Dosage: ONLY ON DAYS 2 TO 3 OF A CYCLE
     Route: 048
     Dates: start: 20130821
  17. APSOMOL [Concomitant]
     Active Substance: ALBUTEROL
     Indication: LUNG DISORDER
     Route: 055
  18. GRANISETRON [Concomitant]
     Active Substance: GRANISETRON
     Indication: VOMITING
     Route: 042
     Dates: start: 20130821
  19. EXEMESTANE. [Concomitant]
     Active Substance: EXEMESTANE
     Indication: BREAST CANCER
     Route: 065
     Dates: start: 20140226
  20. HERCEPTIN [Concomitant]
     Active Substance: TRASTUZUMAB
     Route: 042
     Dates: start: 20131113, end: 20131204
  21. HERCEPTIN [Concomitant]
     Active Substance: TRASTUZUMAB
     Route: 042
     Dates: start: 20140702, end: 20140903
  22. DOCETAXEL. [Concomitant]
     Active Substance: DOCETAXEL
     Indication: BREAST CANCER
     Route: 042
     Dates: start: 20130821, end: 20130821
  23. MIFLONIDE [Concomitant]
     Active Substance: BUDESONIDE
     Indication: LUNG DISORDER
     Route: 048
  24. ATACAND [Concomitant]
     Active Substance: CANDESARTAN CILEXETIL
     Indication: HYPERTENSION
     Route: 048
  25. AMPHO MORONAL [Concomitant]
     Indication: STOMATITIS
     Route: 048
     Dates: start: 20130821
  26. LYRICA [Concomitant]
     Active Substance: PREGABALIN
     Indication: POLYNEUROPATHY
     Route: 048
     Dates: start: 20130819

REACTIONS (2)
  - General physical health deterioration [Recovered/Resolved with Sequelae]
  - Disease progression [Unknown]

NARRATIVE: CASE EVENT DATE: 20141105
